FAERS Safety Report 7548805-2 (Version None)
Quarter: 2011Q2

REPORT INFORMATION
  Report Type: 
  Country: None (occurrence: None)
  Receive Date: 20110615
  Receipt Date: 20110606
  Transmission Date: 20111010
  Serious: Yes (Death, Other)
  Sender: FDA-Public Use
  Company Number: JP-AMGEN-JPNCT2011024786

PATIENT
  Age: 81 Year
  Sex: Female
  Weight: 36 kg

DRUGS (2)
  1. PANITUMUMAB [Suspect]
     Dosage: 6 MG/KG, Q2WK
     Route: 041
     Dates: start: 20100915, end: 20101027
  2. PANITUMUMAB [Suspect]
     Indication: COLORECTAL CANCER
     Dosage: 6 MG/KG, Q2WK
     Route: 041
     Dates: start: 20100721, end: 20100818

REACTIONS (3)
  - RENAL FAILURE CHRONIC [None]
  - COLORECTAL CANCER [None]
  - HYPERKALAEMIA [None]
